FAERS Safety Report 10892493 (Version 1)
Quarter: 2015Q1

REPORT INFORMATION
  Report Type: Spontaneous
  Country: DE (occurrence: DE)
  Receive Date: 20150306
  Receipt Date: 20150306
  Transmission Date: 20150721
  Serious: Yes (Hospitalization)
  Sender: FDA-Public Use
  Company Number: PHHY2015DE024000

PATIENT
  Age: 51 Year
  Sex: Female

DRUGS (3)
  1. EVEROLIMUS [Suspect]
     Active Substance: EVEROLIMUS
     Indication: GLUCAGONOMA
     Dosage: 10 MG, QD
     Route: 048
  2. EVEROLIMUS [Suspect]
     Active Substance: EVEROLIMUS
     Indication: METASTASES TO LIVER
  3. OCTREOTIDE, LONG ACTING [Suspect]
     Active Substance: OCTREOTIDE ACETATE
     Indication: GLUCAGONOMA
     Dosage: 10 MG, EVERY 3 WEEKS
     Route: 030

REACTIONS (8)
  - Ejection fraction [Unknown]
  - Cardiac valve disease [Unknown]
  - Dyspnoea [Unknown]
  - Cough [Unknown]
  - Pneumonia [None]
  - Cardiogenic shock [Unknown]
  - Sinus tachycardia [Unknown]
  - Cardiac failure [Unknown]
